FAERS Safety Report 5171142-0 (Version None)
Quarter: 2006Q4

REPORT INFORMATION
  Report Type: 
  Country: None (occurrence: None)
  Receive Date: 20060918
  Receipt Date: 20060918
  Transmission Date: 20070319
  Serious: No
  Sender: FDA-Public Use
  Company Number: None

PATIENT

DRUGS (2)
  1. FENTANYL [Suspect]
     Dosage: FILM, EXTENDED RELEASE
  2. FENTANYL [Suspect]
     Dosage: FILM, EXTENDED RELEASE

REACTIONS (7)
  - BREAKTHROUGH PAIN [None]
  - DRUG PRESCRIBING ERROR [None]
  - HYPOXIA [None]
  - INCORRECT DOSE ADMINISTERED [None]
  - LOSS OF CONSCIOUSNESS [None]
  - MEDICATION ERROR [None]
  - SLEEP APNOEA SYNDROME [None]
